FAERS Safety Report 14715593 (Version 1)
Quarter: 2018Q2

REPORT INFORMATION
  Report Type: Spontaneous
  Country: ES (occurrence: ES)
  Receive Date: 20180404
  Receipt Date: 20180404
  Transmission Date: 20180711
  Serious: Yes (Death, Other)
  Sender: FDA-Public Use
  Company Number: ES-INDIVIOR LIMITED-INDV-109906-2018

PATIENT
  Age: 45 Year
  Sex: Male

DRUGS (19)
  1. OPIOIDS [Suspect]
     Active Substance: UNSPECIFIED INGREDIENT
     Indication: PRODUCT USED FOR UNKNOWN INDICATION
     Dosage: UNKNOWN
     Route: 065
  2. VORTIOXETINE. [Concomitant]
     Active Substance: VORTIOXETINE
     Indication: DYSPHORIA
  3. AMISULPRIDE [Concomitant]
     Active Substance: AMISULPRIDE
     Indication: DEPRESSION
     Dosage: 100 MG PER DAY
     Route: 065
  4. ALCOHOL. [Suspect]
     Active Substance: ALCOHOL
     Indication: PRODUCT USED FOR UNKNOWN INDICATION
     Dosage: UNK
     Route: 065
  5. CARBAMAZEPINE. [Concomitant]
     Active Substance: CARBAMAZEPINE
     Indication: DEPRESSION
     Dosage: 150 MG PER DAY
     Route: 065
  6. COCAINE [Suspect]
     Active Substance: COCAINE
     Indication: PRODUCT USED FOR UNKNOWN INDICATION
     Dosage: UNK
     Route: 065
  7. VORTIOXETINE. [Concomitant]
     Active Substance: VORTIOXETINE
     Indication: DEPRESSION
     Dosage: 150 MG PER DAY
     Route: 065
  8. BUPROPION. [Concomitant]
     Active Substance: BUPROPION
     Indication: DEPRESSION
     Dosage: 150 MG PER DAY
     Route: 065
  9. AMISULPRIDE [Concomitant]
     Active Substance: AMISULPRIDE
     Indication: DYSPHORIA
  10. CARBAMAZEPINE. [Concomitant]
     Active Substance: CARBAMAZEPINE
     Indication: DYSPHORIA
  11. CANNABINOL [Suspect]
     Active Substance: CANNABINOL
     Indication: PRODUCT USED FOR UNKNOWN INDICATION
     Dosage: UNK
     Route: 065
  12. LAMOTRIGINE. [Concomitant]
     Active Substance: LAMOTRIGINE
     Indication: DEPRESSION
     Dosage: 50-50-100 MG
     Route: 065
  13. CLOMIPRAMINE [Concomitant]
     Active Substance: CLOMIPRAMINE
     Indication: DYSPHORIA
  14. PREGABALIN. [Concomitant]
     Active Substance: PREGABALIN
     Indication: PRODUCT USED FOR UNKNOWN INDICATION
     Dosage: UNK (UNTIL REACHING 150-75-300 MG)
     Route: 065
  15. PREGABALIN. [Concomitant]
     Active Substance: PREGABALIN
     Dosage: DOSE INCREASED UP TO 150-150-300 MG, 75 MG THREE TIMES A DAY
     Route: 065
  16. CLOMIPRAMINE [Concomitant]
     Active Substance: CLOMIPRAMINE
     Indication: DEPRESSION
     Dosage: 150 MG PER DAY
     Route: 065
  17. BUPRENORPHINE/NALOXONE BRAND UNSPECIFIED [Suspect]
     Active Substance: BUPRENORPHINE\NALOXONE
     Indication: DETOXIFICATION
     Dosage: 36 MG PER DAY
     Route: 065
  18. HEROIN [Suspect]
     Active Substance: DIAMORPHINE
     Indication: PRODUCT USED FOR UNKNOWN INDICATION
  19. BUPROPION. [Concomitant]
     Active Substance: BUPROPION
     Indication: DYSPHORIA

REACTIONS (5)
  - Overdose [Fatal]
  - Drug abuse [Unknown]
  - Cardio-respiratory arrest [Fatal]
  - Toxicity to various agents [Fatal]
  - Product use issue [Unknown]
